FAERS Safety Report 19546952 (Version 18)
Quarter: 2023Q1

REPORT INFORMATION
  Report Type: Report from Study
  Country: CN (occurrence: None)
  Receive Date: 20210714
  Receipt Date: 20230309
  Transmission Date: 20230417
  Serious: Yes (Hospitalization)
  Sender: FDA-Public Use
  Company Number: CN-ROCHE-2862555

PATIENT
  Age: 61 Year
  Sex: Male
  Weight: 61 kg

DRUGS (53)
  1. TIRAGOLUMAB [Suspect]
     Active Substance: TIRAGOLUMAB
     Indication: Oesophageal squamous cell carcinoma metastatic
     Dosage: START DATE OF MOST RECENT DOSE OF STUDY DRUG PRIOR TO AE AND SAE 10/JUN/2021
     Route: 042
     Dates: start: 20210610, end: 20210701
  2. ATEZOLIZUMAB [Suspect]
     Active Substance: ATEZOLIZUMAB
     Indication: Oesophageal squamous cell carcinoma metastatic
     Dosage: START DATE OF MOST RECENT DOSE OF STUDY DRUG PRIOR TO AE AND SAE 10/JUN/2021
     Route: 041
     Dates: start: 20210610, end: 20210701
  3. PACLITAXEL [Suspect]
     Active Substance: PACLITAXEL
     Indication: Oesophageal squamous cell carcinoma metastatic
     Dosage: ON 10/JUN/2021 RECEIVED LAST DOSE OF PACLITAXEL PRIOR TO AE AND SAE
     Route: 042
     Dates: start: 20210610, end: 20210701
  4. CISPLATIN [Suspect]
     Active Substance: CISPLATIN
     Indication: Oesophageal squamous cell carcinoma metastatic
     Dosage: ON 10/JUN/2021, RECEIVED LAST DOSE OF CISPLATIN
     Route: 042
     Dates: start: 20210610, end: 20210701
  5. DEXTROSE [Concomitant]
     Active Substance: DEXTROSE
     Dates: start: 20210609, end: 20210613
  6. DEXTROSE [Concomitant]
     Active Substance: DEXTROSE
     Dates: start: 20210701, end: 20210701
  7. DEXTROSE [Concomitant]
     Active Substance: DEXTROSE
     Dates: start: 20210719, end: 20210722
  8. DEXTROSE [Concomitant]
     Active Substance: DEXTROSE
     Dates: start: 20210719, end: 20210719
  9. POTASSIUM CHLORIDE [Concomitant]
     Active Substance: POTASSIUM CHLORIDE
     Dosage: POTASSIUM CHLORIDE INJECTION
     Dates: start: 20210609, end: 20210612
  10. POTASSIUM CHLORIDE [Concomitant]
     Active Substance: POTASSIUM CHLORIDE
     Dates: start: 20210701, end: 20210701
  11. POTASSIUM CHLORIDE [Concomitant]
     Active Substance: POTASSIUM CHLORIDE
     Dates: start: 20210719, end: 20210722
  12. CALCIUM CHLORIDE\POTASSIUM CHLORIDE\SODIUM CHLORIDE [Concomitant]
     Active Substance: CALCIUM CHLORIDE\POTASSIUM CHLORIDE\SODIUM CHLORIDE
     Dates: start: 20210609, end: 20210609
  13. CALCIUM CHLORIDE\POTASSIUM CHLORIDE\SODIUM CHLORIDE [Concomitant]
     Active Substance: CALCIUM CHLORIDE\POTASSIUM CHLORIDE\SODIUM CHLORIDE
     Dates: start: 20210611, end: 20210611
  14. FUROSEMIDE [Concomitant]
     Active Substance: FUROSEMIDE
     Indication: Polyuria
     Dates: start: 20210609, end: 20210611
  15. FUROSEMIDE [Concomitant]
     Active Substance: FUROSEMIDE
     Dates: start: 20210719, end: 20210722
  16. PROMETHAZINE [Concomitant]
     Active Substance: PROMETHAZINE HYDROCHLORIDE
     Route: 030
     Dates: start: 20210610, end: 20210610
  17. TROPISETRON [Concomitant]
     Active Substance: TROPISETRON
     Dates: start: 20210610, end: 20210613
  18. TROPISETRON [Concomitant]
     Active Substance: TROPISETRON
     Dates: start: 20210720, end: 20210723
  19. DIPHENHYDRAMINE [Concomitant]
     Active Substance: DIPHENHYDRAMINE
     Route: 030
     Dates: start: 20210610, end: 20210610
  20. DIPHENHYDRAMINE [Concomitant]
     Active Substance: DIPHENHYDRAMINE
     Route: 030
     Dates: start: 20210720, end: 20210720
  21. DIPHENHYDRAMINE [Concomitant]
     Active Substance: DIPHENHYDRAMINE
     Route: 030
     Dates: start: 20210720, end: 20210720
  22. DEXAMETHASONE SODIUM PHOSPHATE [Concomitant]
     Active Substance: DEXAMETHASONE SODIUM PHOSPHATE
     Route: 042
     Dates: start: 20210610, end: 20210610
  23. DEXAMETHASONE SODIUM PHOSPHATE [Concomitant]
     Active Substance: DEXAMETHASONE SODIUM PHOSPHATE
     Route: 042
     Dates: start: 20210720, end: 20210720
  24. CIMETIDINE [Concomitant]
     Active Substance: CIMETIDINE
     Dates: start: 20210610, end: 20210610
  25. CIMETIDINE [Concomitant]
     Active Substance: CIMETIDINE
     Dates: start: 20210720, end: 20210720
  26. SODIUM BICARBONATE [Concomitant]
     Active Substance: SODIUM BICARBONATE
     Dates: start: 20210610, end: 20210610
  27. SODIUM BICARBONATE [Concomitant]
     Active Substance: SODIUM BICARBONATE
     Dates: start: 20210720, end: 20210720
  28. CALCIUM CHLORIDE\POTASSIUM CHLORIDE\SODIUM CHLORIDE [Concomitant]
     Active Substance: CALCIUM CHLORIDE\POTASSIUM CHLORIDE\SODIUM CHLORIDE
     Dates: start: 20210611, end: 20210611
  29. ADEMETIONINE BUTANEDISULFONATE [Concomitant]
     Active Substance: ADEMETIONINE BUTANEDISULFONATE
     Route: 042
     Dates: start: 20210701, end: 20210723
  30. ADEMETIONINE BUTANEDISULFONATE [Concomitant]
     Active Substance: ADEMETIONINE BUTANEDISULFONATE
     Route: 048
     Dates: start: 20210723, end: 20210729
  31. FUSIDIC ACID [Concomitant]
     Active Substance: FUSIDIC ACID
     Dates: start: 20210707, end: 20210720
  32. DIETARY SUPPLEMENT [Concomitant]
     Active Substance: DIETARY SUPPLEMENT
     Dates: start: 20210713, end: 20210729
  33. TROPISETRON HYDROCHLORIDE [Concomitant]
     Active Substance: TROPISETRON HYDROCHLORIDE
     Dates: start: 20210720, end: 20210723
  34. DIPHENHYDRAMINE HYDROCHLORIDE [Concomitant]
     Active Substance: DIPHENHYDRAMINE HYDROCHLORIDE
     Dates: start: 20210720, end: 20210720
  35. RACEANISODAMINE HYDROCHLORIDE [Concomitant]
     Indication: Analgesic therapy
     Dates: start: 20210703, end: 20210703
  36. TRAMADOL HYDROCHLORIDE [Concomitant]
     Active Substance: TRAMADOL HYDROCHLORIDE
     Indication: Analgesic therapy
     Dates: start: 20210703, end: 20210703
  37. DROTAVERINE HYDROCHLORIDE [Concomitant]
     Active Substance: DROTAVERINE HYDROCHLORIDE
     Indication: Analgesic therapy
     Dates: start: 20210703, end: 20210703
  38. DROTAVERINE HYDROCHLORIDE [Concomitant]
     Active Substance: DROTAVERINE HYDROCHLORIDE
     Indication: Muscle spasms
  39. BACLOFEN [Concomitant]
     Active Substance: BACLOFEN
     Dates: start: 20210723, end: 20210723
  40. OMEPRAZOLE SODIUM [Concomitant]
     Active Substance: OMEPRAZOLE SODIUM
     Dates: start: 20210720, end: 20210723
  41. LORATADINE [Concomitant]
     Active Substance: LORATADINE
     Dates: start: 20210617, end: 20210627
  42. ALBUMIN PREPARED FROM HUMAN PLASMA [Concomitant]
     Dates: start: 20210723, end: 20210723
  43. TRAMADOL [Concomitant]
     Active Substance: TRAMADOL
     Indication: Analgesic therapy
     Dates: start: 20210703, end: 20210703
  44. PRILOSEC [Concomitant]
     Active Substance: OMEPRAZOLE MAGNESIUM
     Dates: start: 20210720, end: 20210723
  45. CISPLATIN [Concomitant]
     Active Substance: CISPLATIN
     Dates: start: 20210814, end: 20220207
  46. CISPLATIN [Concomitant]
     Active Substance: CISPLATIN
     Dates: start: 20210911, end: 20210911
  47. CISPLATIN [Concomitant]
     Active Substance: CISPLATIN
     Dates: start: 20210814, end: 20220207
  48. CATEQUENTINIB [Concomitant]
     Active Substance: CATEQUENTINIB
     Dates: start: 20210814, end: 20220207
  49. CATEQUENTINIB [Concomitant]
     Active Substance: CATEQUENTINIB
     Dates: start: 20211003, end: 20211003
  50. CATEQUENTINIB [Concomitant]
     Active Substance: CATEQUENTINIB
     Dates: start: 20220207, end: 2022
  51. PENPULIMAB [Concomitant]
     Active Substance: PENPULIMAB
     Dates: start: 20210814, end: 20220207
  52. FLUOROURACIL [Concomitant]
     Active Substance: FLUOROURACIL
     Dates: start: 20210814, end: 20220207
  53. NINTEDANIB [Concomitant]
     Active Substance: NINTEDANIB
     Dates: start: 20220207, end: 2022

REACTIONS (2)
  - Hepatic function abnormal [Recovered/Resolved]
  - Drug-induced liver injury [Recovering/Resolving]

NARRATIVE: CASE EVENT DATE: 20210613
